FAERS Safety Report 19178848 (Version 1)
Quarter: 2021Q2

REPORT INFORMATION
  Report Type: Spontaneous
  Country: DE (occurrence: DE)
  Receive Date: 20210426
  Receipt Date: 20210426
  Transmission Date: 20210717
  Serious: Yes (Hospitalization, Other)
  Sender: FDA-Public Use
  Company Number: DE-LUPIN PHARMACEUTICALS INC.-2021-05158

PATIENT
  Age: 62 Year
  Sex: Female
  Weight: 65 kg

DRUGS (12)
  1. MIRTAZAPINE. [Suspect]
     Active Substance: MIRTAZAPINE
     Indication: INSOMNIA
     Dosage: UNK, TREATMENT TRIAL
     Route: 065
  2. LEVODOPA/BENSERAZIDE [Concomitant]
     Active Substance: BENSERAZIDE\LEVODOPA
     Dosage: UNK, LEVODOPA/BENSERAZIDE RETARD WAS SWITCHED TO NON?RETARD FORMULATION OF 125 MG THREE TIMES A DAY
     Route: 065
  3. MOCLOBEMIDE [Interacting]
     Active Substance: MOCLOBEMIDE
     Dosage: 450 MILLIGRAM, QD, THE CURRENT DOSE ; DOSE INCREASED ABOUT 1 YEAR PRIOR TO ADMISSION
     Route: 065
  4. TRAZODONE [Concomitant]
     Active Substance: TRAZODONE HYDROCHLORIDE
     Indication: INSOMNIA
     Dosage: UNK, TREATMENT TRIAL
     Route: 065
  5. RANOLAZINE. [Suspect]
     Active Substance: RANOLAZINE
     Indication: HYPERTENSION
     Dosage: 375 MILLIGRAM, QD, THE PATIENT TOOK RANOLAZINE OCCASIONALLY
     Route: 065
  6. AGOMELATINE [Suspect]
     Active Substance: AGOMELATINE
     Indication: DEPRESSIVE SYMPTOM
     Dosage: 50 MILLIGRAM, QD
     Route: 065
  7. LEVODOPA/BENSERAZIDE [Concomitant]
     Active Substance: BENSERAZIDE\LEVODOPA
     Indication: PARKINSONISM
     Dosage: 1 DOSAGE FORM, QD, RETARD FORMULATION
     Route: 065
  8. MOCLOBEMIDE [Interacting]
     Active Substance: MOCLOBEMIDE
     Indication: DEPRESSIVE SYMPTOM
     Dosage: 150 MILLIGRAM, QD
     Route: 065
  9. PRAMIPEXOLE. [Concomitant]
     Active Substance: PRAMIPEXOLE
     Dosage: UNK, DOSE REDUCED
     Route: 065
  10. LEVOTHYROXINE. [Concomitant]
     Active Substance: LEVOTHYROXINE
     Indication: HYPOTHYROIDISM
     Dosage: 100 MICROGRAM, QD
     Route: 065
  11. RASAGILINE. [Interacting]
     Active Substance: RASAGILINE
     Indication: PARKINSONISM
     Dosage: 1 MILLIGRAM, QD
     Route: 065
  12. PRAMIPEXOLE. [Concomitant]
     Active Substance: PRAMIPEXOLE
     Indication: DEPRESSIVE SYMPTOM
     Dosage: 0.525 MILLIGRAM, QD
     Route: 065

REACTIONS (4)
  - Drug intolerance [Unknown]
  - Drug ineffective [Unknown]
  - Serotonin syndrome [Recovered/Resolved]
  - Drug interaction [Unknown]
